FAERS Safety Report 8617168-3 (Version None)
Quarter: 2012Q3

REPORT INFORMATION
  Report Type: 
  Country: None (occurrence: None)
  Receive Date: 20120823
  Receipt Date: 20120816
  Transmission Date: 20120928
  Serious: Yes (Other)
  Sender: FDA-Public Use
  Company Number: US-TEVA-2011005027

PATIENT
  Sex: Female
  Weight: 87.622 kg

DRUGS (11)
  1. OMEPRAZOLE [Concomitant]
     Indication: GASTROOESOPHAGEAL REFLUX DISEASE
     Dosage: 20 MILLIGRAM DAILY;
  2. INSULIN ASPART [Concomitant]
     Indication: DIABETES MELLITUS
  3. CALAMINE [Concomitant]
  4. PROVIGIL [Suspect]
     Indication: HYPERSOMNIA
     Dosage: 200 MILLIGRAM DAILY;
     Route: 048
     Dates: start: 20100901, end: 20111004
  5. LANTUS [Concomitant]
     Indication: DIABETES MELLITUS
  6. LACTOBACILLUS ACIDOPHILUS [Concomitant]
     Indication: PROBIOTIC THERAPY
     Dosage: 1 DOSAGE FORMS DAILY;
  7. ASCORBIC ACID [Concomitant]
     Indication: SUPPLEMENTATION THERAPY
     Dosage: 1000 MILLIGRAM DAILY;
  8. SERTRALINE HYDROCHLORIDE [Concomitant]
     Indication: DEPRESSION
     Dosage: 50 MILLIGRAM DAILY;
  9. MULTI-VITAMINS [Concomitant]
     Indication: PREGNANCY
     Dosage: 1 DOSAGE FORMS DAILY;
     Dates: start: 20110929
  10. AMMONIUM LACTATE [Concomitant]
  11. ONDANSETRON [Concomitant]
     Indication: DEPRESSION
     Dates: start: 20110929

REACTIONS (3)
  - POLYHYDRAMNIOS [None]
  - LIVE BIRTH [None]
  - SUPRAVENTRICULAR TACHYCARDIA [None]
